FAERS Safety Report 25240401 (Version 1)
Quarter: 2025Q2

REPORT INFORMATION
  Report Type: Spontaneous
  Country: US (occurrence: US)
  Receive Date: 20250425
  Receipt Date: 20250425
  Transmission Date: 20250717
  Serious: Yes (Other)
  Sender: TAKEDA
  Company Number: US-TAKEDA-2025TUS038876

PATIENT
  Sex: Female

DRUGS (3)
  1. ENTYVIO [Suspect]
     Active Substance: VEDOLIZUMAB
     Indication: Crohn^s disease
  2. INFLIXIMAB [Suspect]
     Active Substance: INFLIXIMAB
     Indication: Product used for unknown indication
  3. AZATHIOPRINE [Concomitant]
     Active Substance: AZATHIOPRINE

REACTIONS (1)
  - Lupus-like syndrome [Unknown]
